FAERS Safety Report 23449144 (Version 1)
Quarter: 2024Q1

REPORT INFORMATION
  Report Type: Spontaneous
  Country: US (occurrence: None)
  Receive Date: 20240128
  Receipt Date: 20240128
  Transmission Date: 20240410
  Serious: No
  Sender: FDA-Public Use
  Company Number: 2024A018265

PATIENT
  Sex: Female

DRUGS (1)
  1. CRESTOR [Suspect]
     Active Substance: ROSUVASTATIN CALCIUM
     Dosage: 10 MG TABLETS FOR HER 5 MG DOSE
     Route: 048

REACTIONS (5)
  - Myalgia [Unknown]
  - Headache [Unknown]
  - Inability to afford medication [Unknown]
  - Product use issue [Unknown]
  - Wrong technique in product usage process [Unknown]
